FAERS Safety Report 26082963 (Version 1)
Quarter: 2025Q4

REPORT INFORMATION
  Report Type: Spontaneous
  Country: US (occurrence: None)
  Receive Date: 20251124
  Receipt Date: 20251124
  Transmission Date: 20260118
  Serious: Yes (Hospitalization)
  Sender: FDA-CTU
  Company Number: None

PATIENT
  Age: 83 Year
  Sex: Female

DRUGS (2)
  1. IBRANCE [Suspect]
     Active Substance: PALBOCICLIB
     Indication: Breast cancer female
     Dosage: 100 MG  DAILY ON DAYS 1-28 ORAL?
     Route: 048
     Dates: start: 20241205
  2. VERZENIO [Suspect]
     Active Substance: ABEMACICLIB

REACTIONS (5)
  - Diarrhoea [None]
  - Vomiting [None]
  - Abdominal pain [None]
  - Dehydration [None]
  - Malignant neoplasm progression [None]
